FAERS Safety Report 5534913-4 (Version None)
Quarter: 2007Q4

REPORT INFORMATION
  Report Type: 
  Country: None (occurrence: None)
  Receive Date: 20071205
  Receipt Date: 20071130
  Transmission Date: 20080405
  Serious: Yes (Hospitalization)
  Sender: FDA-Public Use
  Company Number: US-BOEHRINGER INGELHEIM PHARMACEUTICALS, INC.-2007-BP-24043BP

PATIENT
  Age: 62 Year
  Sex: Female

DRUGS (8)
  1. SPIRIVA [Suspect]
     Indication: CHRONIC OBSTRUCTIVE PULMONARY DISEASE
     Route: 055
     Dates: start: 20070101
  2. ADVAIR DISKUS 100/50 [Concomitant]
     Indication: CHRONIC OBSTRUCTIVE PULMONARY DISEASE
  3. ALBUTEROL [Concomitant]
     Indication: CHRONIC OBSTRUCTIVE PULMONARY DISEASE
  4. NASONEX [Concomitant]
     Indication: SEASONAL ALLERGY
  5. CLARITIN [Concomitant]
     Indication: SEASONAL ALLERGY
  6. FOSAMAX [Concomitant]
     Indication: OSTEOPOROSIS
  7. CALCIUM [Concomitant]
     Indication: OSTEOPOROSIS
  8. PROAIR HFA [Concomitant]

REACTIONS (1)
  - BRONCHITIS [None]
